FAERS Safety Report 23307014 (Version 2)
Quarter: 2024Q1

REPORT INFORMATION
  Report Type: Spontaneous
  Country: ES (occurrence: ES)
  Receive Date: 20231218
  Receipt Date: 20240207
  Transmission Date: 20240410
  Serious: Yes (Other)
  Sender: FDA-Public Use
  Company Number: ES-MENARINI-ES-MEN-091389

PATIENT

DRUGS (13)
  1. ORITAVANCIN [Suspect]
     Active Substance: ORITAVANCIN
     Indication: Staphylococcal infection
     Dosage: 1200 MILLIGRAM, 1 IN 4 HOUR
     Route: 042
     Dates: start: 20231018, end: 20231018
  2. ORITAVANCIN [Suspect]
     Active Substance: ORITAVANCIN
     Indication: Device related infection
     Dosage: 1200 MILLIGRAM, 1 IN 4 HOUR
     Route: 042
     Dates: start: 20231031, end: 20231031
  3. ORITAVANCIN [Suspect]
     Active Substance: ORITAVANCIN
     Indication: Wound infection
     Dosage: 1200 MILLIGRAM, 1 IN 4 HOUR
     Route: 042
     Dates: start: 20231121, end: 20231121
  4. METAMIZOLE [Concomitant]
     Active Substance: METAMIZOLE
     Indication: Product used for unknown indication
     Dosage: 1 TABLET EVERY 08 HOURS
     Route: 048
  5. FOSTER [Concomitant]
     Active Substance: BECLOMETHASONE\FORMOTEROL
     Indication: Product used for unknown indication
     Dosage: 200 MCG/12 MCG (100 MICROGRAMS/6 MICROGRAMS TWICE A DAY)
     Route: 055
     Dates: start: 20220422
  6. SINGULAIR [Concomitant]
     Active Substance: MONTELUKAST SODIUM
     Indication: Product used for unknown indication
     Dosage: UNK
     Route: 065
  7. XARELTO [Concomitant]
     Active Substance: RIVAROXABAN
     Indication: Product used for unknown indication
     Dosage: 20 MILLIGRAM, QD
     Route: 065
     Dates: start: 20201006
  8. PROPANOLOL KERN [Concomitant]
     Indication: Product used for unknown indication
     Dosage: 80.0 MILLIGRAM(S) (40 MILLIGRAM(S), 1 IN 0.50 DAY)
     Route: 048
     Dates: start: 20220916
  9. OMEPRAZOLE [Concomitant]
     Active Substance: OMEPRAZOLE
     Indication: Product used for unknown indication
     Dosage: 20.0 MILLIGRAM(S) (20 MILLIGRAM(S), 1 IN 1 DAY)
     Route: 048
  10. CYANOCOBALAMIN [Concomitant]
     Active Substance: CYANOCOBALAMIN
     Indication: Product used for unknown indication
     Dosage: 33.33 MICROGRAM(S) (1000 MICROGRAM(S), 1 IN 1 MONTH)
     Route: 030
     Dates: start: 20220503
  11. CALCIFEDIOL [Concomitant]
     Active Substance: CALCIFEDIOL
     Indication: Product used for unknown indication
     Dosage: 0.001 MILLIGRAM(S) (0.266 MILLIGRAM(S), 1 IN 6 MONTH)
     Route: 048
     Dates: start: 20220218
  12. PROLIA [Concomitant]
     Active Substance: DENOSUMAB
     Indication: Product used for unknown indication
     Dosage: 60 MILLIGRAM(S), 1 IN 6 MONTH
     Route: 030
     Dates: start: 20230428
  13. MONTELUKAST NORMON [Concomitant]
     Indication: Product used for unknown indication
     Dosage: 10 MILLIGRAM, QD
     Route: 048
     Dates: start: 20220422

REACTIONS (8)
  - Pallor [Recovered/Resolved]
  - Cyanosis [Recovered/Resolved]
  - Cyanosis [Recovered/Resolved]
  - Infusion related reaction [Recovered/Resolved]
  - Chills [Recovered/Resolved]
  - Off label use [Recovered/Resolved]
  - Multiple use of single-use product [Recovered/Resolved]
  - Incorrect product administration duration [Recovered/Resolved]

NARRATIVE: CASE EVENT DATE: 20230101
